FAERS Safety Report 9371094 (Version 1)
Quarter: 2013Q2

REPORT INFORMATION
  Report Type: Spontaneous
  Country: US (occurrence: None)
  Receive Date: 20130626
  Receipt Date: 20130626
  Transmission Date: 20140414
  Serious: No
  Sender: FDA-Public Use
  Company Number: None

PATIENT
  Sex: 0

DRUGS (2)
  1. CIPROFLOXACIN [Suspect]
     Indication: DIVERTICULITIS
     Route: 048
     Dates: start: 20130624
  2. METRONIDAZOLE [Suspect]
     Indication: DIVERTICULITIS
     Route: 048
     Dates: start: 20130624

REACTIONS (4)
  - Medication error [None]
  - Drug dispensing error [None]
  - Drug label confusion [None]
  - Circumstance or information capable of leading to medication error [None]
